FAERS Safety Report 8485975-6 (Version None)
Quarter: 2012Q2

REPORT INFORMATION
  Report Type: 
  Country: None (occurrence: None)
  Receive Date: 20120626
  Receipt Date: 20120618
  Transmission Date: 20120825
  Serious: Yes (Hospitalization)
  Sender: FDA-Public Use
  Company Number: GER/UKI/12/0024714

PATIENT
  Age: 76 Year
  Sex: Female
  Weight: 83 kg

DRUGS (10)
  1. NITROFURANTOIN [Concomitant]
  2. TRIMETHOPRIM [Concomitant]
  3. LANSOPRAZOLE [Concomitant]
  4. SIMVASTAITN (SIMVASTATIN) [Concomitant]
  5. RIVASTIGMINE TARTRATE [Suspect]
     Indication: PRODUCT USED FOR UNKNOWN INDICATION
     Dates: start: 20120208, end: 20120525
  6. ACETAMINOPHEN [Concomitant]
  7. ALBUTEROL SULFATE [Concomitant]
  8. ASPIRIN [Concomitant]
  9. CITALOPRAM HYDROBROMIDE [Concomitant]
  10. PERINDOPRIL ERBUMINE [Concomitant]

REACTIONS (2)
  - FALL [None]
  - BRADYCARDIA [None]
